FAERS Safety Report 6460109-8 (Version None)
Quarter: 2009Q4

REPORT INFORMATION
  Report Type: 
  Country: None (occurrence: None)
  Receive Date: 20091129
  Receipt Date: 20091124
  Transmission Date: 20100525
  Serious: Yes (Death, Other)
  Sender: FDA-Public Use
  Company Number: PHHY2009IT41115

PATIENT
  Sex: Male

DRUGS (3)
  1. ZOMETA [Suspect]
     Indication: METASTASES TO KIDNEY
     Dosage: 4 MG, MONTHLY
     Route: 042
     Dates: start: 20050601, end: 20061031
  2. TEMSIROLIMUS [Concomitant]
  3. SUTENT [Concomitant]

REACTIONS (2)
  - DEATH [None]
  - OSTEONECROSIS [None]
